FAERS Safety Report 16932147 (Version 1)
Quarter: 2019Q4

REPORT INFORMATION
  Report Type: Report from Study
  Country: US (occurrence: US)
  Receive Date: 20191017
  Receipt Date: 20191017
  Transmission Date: 20200122
  Serious: Yes (Hospitalization)
  Sender: FDA-Public Use
  Company Number: NVSC2019US003053

PATIENT
  Age: 26 Year
  Sex: Female

DRUGS (7)
  1. SIMULECT [Suspect]
     Active Substance: BASILIXIMAB
     Indication: IMMUNOSUPPRESSION
     Dosage: 20 MG, QID
     Route: 048
     Dates: start: 20181211, end: 20181215
  2. MYCOPHENOLATE MOFETIL. [Suspect]
     Active Substance: MYCOPHENOLATE MOFETIL
     Indication: IMMUNOSUPPRESSION
     Dosage: 1000 MG (EVERY 12 HOURS)
     Route: 048
     Dates: start: 20181211
  3. PREDNISONE TABLETS USP [Suspect]
     Active Substance: PREDNISONE
     Indication: IMMUNOSUPPRESSION
     Dosage: 500 MG, QD
     Route: 042
     Dates: start: 20181211
  4. FAMOTIDINE. [Concomitant]
     Active Substance: FAMOTIDINE
     Indication: PRODUCT USED FOR UNKNOWN INDICATION
     Dosage: UNK
     Route: 065
     Dates: start: 20181211
  5. TACROLIMUS. [Suspect]
     Active Substance: TACROLIMUS
     Indication: IMMUNOSUPPRESSION
     Dosage: 7 MG, QD
     Route: 048
     Dates: start: 20181211
  6. METHYLPREDNISOLONE TABLETS USP [Suspect]
     Active Substance: METHYLPREDNISOLONE
     Indication: IMMUNOSUPPRESSION
     Dosage: 500 MG, QD
     Route: 042
     Dates: start: 20181211
  7. MAGNESIUM [Concomitant]
     Active Substance: MAGNESIUM
     Indication: PRODUCT USED FOR UNKNOWN INDICATION
     Dosage: UNK
     Route: 065
     Dates: start: 20181221

REACTIONS (6)
  - Dysuria [Unknown]
  - Pyrexia [Unknown]
  - Tachycardia [Unknown]
  - Urinary tract infection [Recovering/Resolving]
  - Oedema [Unknown]
  - Hydronephrosis [Recovering/Resolving]

NARRATIVE: CASE EVENT DATE: 20190920
